FAERS Safety Report 8539518-9 (Version None)
Quarter: 2012Q3

REPORT INFORMATION
  Report Type: 
  Country: None (occurrence: None)
  Receive Date: 20120726
  Receipt Date: 20120713
  Transmission Date: 20120928
  Serious: Yes (Hospitalization)
  Sender: FDA-Public Use
  Company Number: US-COVIDIEN/TYCO HEALTHCARE/MALLINCKRODT-T201202810

PATIENT
  Age: 51 Year
  Sex: Female

DRUGS (4)
  1. PREDNISONE [Concomitant]
     Indication: ASTHMA
  2. ATROVENT [Concomitant]
     Indication: ASTHMA
  3. OPTIRAY 160 [Suspect]
     Indication: COMPUTERISED TOMOGRAM
     Dosage: 75 ML, SINGLE
     Route: 042
     Dates: start: 20120712, end: 20120712
  4. BACTRIM [Concomitant]

REACTIONS (8)
  - MUSCULAR WEAKNESS [None]
  - INJECTION SITE EXTRAVASATION [None]
  - INJECTION SITE SWELLING [None]
  - FLUSHING [None]
  - BLOOD URINE PRESENT [None]
  - HYPOAESTHESIA [None]
  - NAUSEA [None]
  - DRUG ADMINISTRATION ERROR [None]
